FAERS Safety Report 21705062 (Version 1)
Quarter: 2022Q4

REPORT INFORMATION
  Report Type: Spontaneous
  Country: US (occurrence: None)
  Receive Date: 20221208
  Receipt Date: 20221208
  Transmission Date: 20230113
  Serious: Yes (Hospitalization)
  Sender: FDA-Public Use
  Company Number: None

PATIENT
  Age: 74 Year
  Sex: Male
  Weight: 90 kg

DRUGS (2)
  1. AZACITIDINE [Suspect]
     Active Substance: AZACITIDINE
     Dates: end: 20221108
  2. VENETOCLAX [Suspect]
     Active Substance: VENETOCLAX
     Dates: end: 20221129

REACTIONS (2)
  - Pancytopenia [None]
  - Bacterial sepsis [None]

NARRATIVE: CASE EVENT DATE: 20221207
